FAERS Safety Report 8808044 (Version 2)
Quarter: 2012Q4

REPORT INFORMATION
  Report Type: 
  Country: CH (occurrence: CH)
  Receive Date: 20120925
  Receipt Date: 20120930
  Transmission Date: 20130627
  Serious: Yes (Other)
  Sender: FDA-Public Use
  Company Number: CH-US-EMD SERONO, INC.-7162396

PATIENT
  Age: 54 Year
  Sex: Female

DRUGS (2)
  1. REBIF [Suspect]
     Indication: MULTIPLE SCLEROSIS
     Route: 058
     Dates: start: 201209
  2. COENZYME Q10 [Concomitant]
     Indication: PRODUCT USED FOR UNKNOWN INDICATION

REACTIONS (2)
  - Angina pectoris [Recovering/Resolving]
  - Fatigue [Recovering/Resolving]
